FAERS Safety Report 5176479-7 (Version None)
Quarter: 2006Q4

REPORT INFORMATION
  Report Type: 
  Country: None (occurrence: None)
  Receive Date: 20061215
  Receipt Date: 20061205
  Transmission Date: 20070319
  Serious: Yes (Hospitalization, Disabling)
  Sender: FDA-Public Use
  Company Number: GB-SANOFI-SYNTHELABO-A01200610572

PATIENT
  Age: 41 Year
  Sex: Female

DRUGS (3)
  1. DANAZOL [Suspect]
     Indication: MENORRHAGIA
     Route: 048
     Dates: start: 20060703, end: 20060724
  2. DIHYDROCODEINE BITARTRATE INJ [Concomitant]
     Indication: PAIN
     Route: 065
  3. TRAMADOL HCL [Concomitant]
     Indication: PAIN
     Route: 048
     Dates: start: 20030101

REACTIONS (2)
  - CAROTID ARTERY DISSECTION [None]
  - HEMIPARESIS [None]
